FAERS Safety Report 5351338-5 (Version None)
Quarter: 2007Q2

REPORT INFORMATION
  Report Type: 
  Country: None (occurrence: None)
  Receive Date: 20070608
  Receipt Date: 20070604
  Transmission Date: 20071010
  Serious: Yes (Hospitalization)
  Sender: FDA-Public Use
  Company Number: BE-BOEHRINGER INGELHEIM PHARMACEUTICALS, INC.-2007-BL-00083BL

PATIENT
  Sex: Female
  Weight: 75 kg

DRUGS (3)
  1. VIRAMUNE [Suspect]
     Indication: HIV INFECTION
     Route: 048
     Dates: start: 20070214, end: 20070321
  2. AZT [Concomitant]
     Indication: HIV INFECTION
     Route: 048
     Dates: start: 20070214
  3. LAMIVUDINE [Concomitant]
     Indication: HIV INFECTION
     Route: 048
     Dates: start: 20070214

REACTIONS (3)
  - LYMPH NODE PAIN [None]
  - PYREXIA [None]
  - TRANSAMINASES INCREASED [None]
